FAERS Safety Report 9333447 (Version 3)
Quarter: 2013Q3

REPORT INFORMATION
  Report Type: Report from Study
  Country: US (occurrence: US)
  Receive Date: 20130606
  Receipt Date: 20130808
  Transmission Date: 20140515
  Serious: Yes (Hospitalization, Other)
  Sender: FDA-Public Use
  Company Number: US-PURDUE-USA-2013-0102924

PATIENT
  Age: 65 Year
  Sex: Male

DRUGS (2)
  1. MS CONTIN TABLETS [Suspect]
     Indication: BACK PAIN
     Dosage: 60 MG, TID
     Route: 048
  2. MS CONTIN TABLETS [Suspect]
     Indication: PAIN IN EXTREMITY

REACTIONS (12)
  - Pneumonia [Unknown]
  - Renal impairment [Unknown]
  - Urinary tract infection [Unknown]
  - Oxygen saturation decreased [Unknown]
  - Blood urea increased [Unknown]
  - Blood creatinine increased [Unknown]
  - Disorientation [Unknown]
  - Confusional state [Unknown]
  - Somnolence [Not Recovered/Not Resolved]
  - Inadequate analgesia [Not Recovered/Not Resolved]
  - Decreased activity [Not Recovered/Not Resolved]
  - Unevaluable event [Unknown]
